FAERS Safety Report 9731400 (Version 4)
Quarter: 2015Q1

REPORT INFORMATION
  Report Type: Spontaneous
  Country: JP (occurrence: JP)
  Receive Date: 20131203
  Receipt Date: 20150331
  Transmission Date: 20150721
  Serious: Yes (Death)
  Sender: FDA-Public Use
  Company Number: JP-OTSUKA-JP-2013-15678

PATIENT

DRUGS (13)
  1. VENECTOMIN [Concomitant]
     Active Substance: CANRENOATE POTASSIUM
     Indication: PRODUCT USED FOR UNKNOWN INDICATION
     Dosage: 200 MG MILLIGRAM(S), DAILY DOSE
     Route: 042
     Dates: start: 20130916, end: 20131014
  2. LANSOPRAZOLE. [Concomitant]
     Active Substance: LANSOPRAZOLE
     Indication: PRODUCT USED FOR UNKNOWN INDICATION
     Dosage: 15 MG MILLIGRAM(S), QD
     Route: 048
     Dates: start: 20130528, end: 20131025
  3. NEUROVITAN [Concomitant]
     Active Substance: VITAMINS
     Indication: PRODUCT USED FOR UNKNOWN INDICATION
     Dosage: 3 DF DOSAGE FORM, DAILY DOSE
     Route: 048
     Dates: start: 20130528, end: 20131021
  4. SAMSCA [Suspect]
     Active Substance: TOLVAPTAN
     Indication: ASCITES
     Dosage: 3.75 MG MILLIGRAM(S), DAILY DOSE
     Route: 048
     Dates: start: 20131001, end: 20131003
  5. EPEL [Concomitant]
     Indication: PRODUCT USED FOR UNKNOWN INDICATION
     Dosage: 100 MG MILLIGRAM(S), DAILY DOSE
     Route: 048
     Dates: start: 20130528, end: 20131021
  6. AMINOLEBAN EN [Concomitant]
     Active Substance: UNSPECIFIED INGREDIENT
     Indication: PRODUCT USED FOR UNKNOWN INDICATION
     Dosage: 150 G GRAM(S), DAILY DOSE
     Route: 048
     Dates: start: 20130718, end: 20131025
  7. LASIX [Concomitant]
     Active Substance: FUROSEMIDE
     Indication: PRODUCT USED FOR UNKNOWN INDICATION
     Dosage: 80 MG MILLIGRAM(S), DAILY DOSE
     Route: 042
     Dates: start: 20130906, end: 20131016
  8. HERBAL NOS [Concomitant]
     Active Substance: HERBALS
     Indication: PRODUCT USED FOR UNKNOWN INDICATION
     Dosage: 7.5 G GRAM(S), DAILY DOSE
     Route: 048
     Dates: end: 20131021
  9. URSO [Concomitant]
     Active Substance: URSODIOL
     Indication: PRODUCT USED FOR UNKNOWN INDICATION
     Dosage: 600 MG MILLIGRAM(S), DAILY DOSE
     Route: 048
     Dates: end: 20131025
  10. MONILAC [Concomitant]
     Active Substance: LACTULOSE
     Indication: PRODUCT USED FOR UNKNOWN INDICATION
     Dosage: 30 ML MILLILITRE(S), DAILY DOSE
     Route: 048
     Dates: start: 20130704, end: 20131025
  11. SAMSCA [Suspect]
     Active Substance: TOLVAPTAN
     Dosage: 7.5 MG MILLIGRAM(S), DAILY DOSE
     Route: 048
     Dates: start: 20131004, end: 20131012
  12. ALOSITOL [Concomitant]
     Active Substance: ALLOPURINOL
     Indication: PRODUCT USED FOR UNKNOWN INDICATION
     Dosage: 100 MG MILLIGRAM(S), QD
     Route: 048
     Dates: start: 20130527, end: 20131021
  13. CLARITIN [Concomitant]
     Active Substance: LORATADINE
     Indication: PRODUCT USED FOR UNKNOWN INDICATION
     Dosage: 10 MG MILLIGRAM(S), QD
     Route: 048
     Dates: start: 20130527, end: 20131021

REACTIONS (2)
  - Acute kidney injury [Fatal]
  - Blood creatinine increased [Fatal]

NARRATIVE: CASE EVENT DATE: 20131012
